FAERS Safety Report 19051434 (Version 1)
Quarter: 2021Q1

REPORT INFORMATION
  Report Type: Spontaneous
  Country: FR (occurrence: FR)
  Receive Date: 20210324
  Receipt Date: 20210324
  Transmission Date: 20210420
  Serious: Yes (Other)
  Sender: FDA-Public Use
  Company Number: FR-SA-2021SA091649

PATIENT
  Age: 70 Year
  Sex: Male
  Weight: 93 kg

DRUGS (15)
  1. CLONAZEPAM. [Suspect]
     Active Substance: CLONAZEPAM
     Indication: NEURALGIA
     Route: 048
     Dates: end: 20210226
  2. TRIMETHOPRIM. [Suspect]
     Active Substance: TRIMETHOPRIM
     Indication: OSTEOMYELITIS
     Route: 048
     Dates: start: 20210210, end: 20210227
  3. ATENOLOL. [Concomitant]
     Active Substance: ATENOLOL
     Route: 048
  4. PROCORALAN [Concomitant]
     Active Substance: IVABRADINE
     Route: 048
  5. METFORMINE HCL [Concomitant]
     Active Substance: METFORMIN HYDROCHLORIDE
     Route: 048
  6. DIFFU?K [Concomitant]
     Active Substance: POTASSIUM CHLORIDE
     Route: 048
  7. KARDEGIC [Concomitant]
     Active Substance: ASPIRIN DL-LYSINE
     Route: 048
  8. TOUJEO [Concomitant]
     Active Substance: INSULIN GLARGINE
     Route: 058
  9. INEXIUM [ESOMEPRAZOLE SODIUM] [Concomitant]
     Active Substance: ESOMEPRAZOLE SODIUM
     Dosage: 1 DF
     Route: 048
  10. ROSUVASTATIN. [Concomitant]
     Active Substance: ROSUVASTATIN
     Route: 048
  11. DULOXETINE HYDROCHLORIDE. [Suspect]
     Active Substance: DULOXETINE HYDROCHLORIDE
     Indication: DEPRESSION
     Route: 048
     Dates: start: 20210225, end: 20210226
  12. DUOTRAV [Concomitant]
     Active Substance: TIMOLOL MALEATE\TRAVOPROST
     Dosage: 1 GTT DROPS
     Route: 047
  13. EZETROL [Concomitant]
     Active Substance: EZETIMIBE
     Route: 048
  14. REPAGLINIDE. [Concomitant]
     Active Substance: REPAGLINIDE
     Route: 048
  15. RIFADINE [Suspect]
     Active Substance: RIFAMPIN
     Indication: OSTEOMYELITIS
     Dosage: 3 CAPSULES IN THE MORNING AND 2 CAPSULES IN THE EVENING
     Route: 048
     Dates: start: 20210210, end: 20210226

REACTIONS (5)
  - Agitation [Recovered/Resolved]
  - Disorientation [Recovered/Resolved]
  - Hallucination, auditory [Recovered/Resolved]
  - Hallucination, visual [Recovered/Resolved]
  - Confusional state [Recovered/Resolved]
